FAERS Safety Report 10187776 (Version 1)
Quarter: 2014Q2

REPORT INFORMATION
  Report Type: Spontaneous
  Country: US (occurrence: US)
  Receive Date: 20140522
  Receipt Date: 20140522
  Transmission Date: 20141212
  Serious: No
  Sender: FDA-Public Use
  Company Number: US-SANOFI-AVENTIS-2013SA087818

PATIENT
  Age: 40 Year
  Sex: Female

DRUGS (4)
  1. LANTUS SOLOSTAR [Suspect]
     Indication: TYPE 2 DIABETES MELLITUS
     Dosage: DOSE:45 UNIT(S)
     Route: 051
     Dates: start: 2009
  2. METFORMIN [Suspect]
  3. ZYRTEC [Suspect]
  4. SOLOSTAR [Concomitant]

REACTIONS (2)
  - Somnolence [Recovered/Resolved]
  - Injury associated with device [Unknown]
